FAERS Safety Report 4990482-9 (Version None)
Quarter: 2006Q2

REPORT INFORMATION
  Report Type: 
  Country: None (occurrence: None)
  Receive Date: 20060427
  Receipt Date: 20060418
  Transmission Date: 20061013
  Serious: Yes (Death, Life-Threatening, Hospitalization, Other)
  Sender: FDA-Public Use
  Company Number: 2006-04-1477

PATIENT
  Age: 86 Year
  Sex: Female

DRUGS (8)
  1. INTEGRILIN [Suspect]
     Indication: ANGINA UNSTABLE
     Dosage: INTRAVENOUS
     Route: 042
  2. ASPIRIN [Concomitant]
  3. CLOPIDOGREL [Concomitant]
  4. METOPROLOL [Concomitant]
  5. ENALAPRIL MALEATE [Concomitant]
  6. HEPARIN LOW MOLECULAR WEIGHT [Concomitant]
  7. FUROSEMIDE [Concomitant]
  8. NITROGLYCERIN TOPICAL [Concomitant]

REACTIONS (14)
  - DISSEMINATED INTRAVASCULAR COAGULATION [None]
  - DRUG INEFFECTIVE [None]
  - ECCHYMOSIS [None]
  - EMBOLISM [None]
  - ESCHERICHIA INFECTION [None]
  - GINGIVAL BLEEDING [None]
  - HAEMOGLOBIN DECREASED [None]
  - HEMIPLEGIA [None]
  - LEUKOCYTOSIS [None]
  - MENTAL STATUS CHANGES [None]
  - MULTI-ORGAN FAILURE [None]
  - PLATELET COUNT DECREASED [None]
  - PROCEDURAL HYPOTENSION [None]
  - SEPTIC SHOCK [None]
